FAERS Safety Report 6013657-9 (Version None)
Quarter: 2008Q4

REPORT INFORMATION
  Report Type: 
  Country: None (occurrence: None)
  Receive Date: 20081219
  Receipt Date: 20081215
  Transmission Date: 20090506
  Serious: Yes (Death)
  Sender: FDA-Public Use
  Company Number: TR-ROCHE-603028

PATIENT
  Sex: Male
  Weight: 60 kg

DRUGS (6)
  1. CAPECITABINE [Suspect]
     Dosage: 1-14 DAYS EVERY 3 WEEKS. TEMPORARILY INTERRUPTED. SECOND CYCLE WAS NOT REPORTED. DOSAGE FORM:500 MG
     Route: 048
     Dates: start: 20081117, end: 20081208
  2. BEVACIZUMAB [Suspect]
     Dosage: DOSAGE FORM REPORTED AS 400 MG. THERAPY TEMPORARILY INTERRUPTED. SECOND CYCLE WAS NOT REPORTED.
     Route: 042
     Dates: start: 20081117, end: 20081208
  3. OXALIPLATIN [Suspect]
     Dosage: DOSAGE FORM REPORTED AS 100 MG AND 500 MG. TEMPORARILY INTERRUPTED. SECOND CYCLE WAS NOT REPORTED
     Route: 042
     Dates: start: 20081117, end: 20081208
  4. LOPERAMIDE HCL [Concomitant]
     Dates: start: 20081127, end: 20081215
  5. LOMOTIL [Concomitant]
     Dates: start: 20081127, end: 20081215
  6. LORAZEPAM [Concomitant]
     Dates: start: 20081127, end: 20081215

REACTIONS (3)
  - CARDIAC ARREST [None]
  - DEHYDRATION [None]
  - DIARRHOEA [None]
